FAERS Safety Report 11191457 (Version 1)
Quarter: 2015Q2

REPORT INFORMATION
  Report Type: Spontaneous
  Country: IE (occurrence: IE)
  Receive Date: 20150616
  Receipt Date: 20150616
  Transmission Date: 20150821
  Serious: Yes (Hospitalization, Other)
  Sender: FDA-Public Use
  Company Number: IE-AMGEN-IRLSP2015053133

PATIENT
  Age: 85 Year
  Sex: Female
  Weight: 65 kg

DRUGS (10)
  1. NU-SEALS ASPIRIN [Concomitant]
     Dosage: 75 MG, QD
     Route: 048
  2. SALAMOL                            /00139501/ [Concomitant]
     Dosage: 100 MUG, BID
  3. CALCICHEW D3 FORTE [Concomitant]
     Active Substance: CALCIUM\CHOLECALCIFEROL
     Dosage: 500 MG, BID
  4. RAMITACE [Concomitant]
     Dosage: 2.5 MG, QD
     Route: 048
     Dates: start: 20150207
  5. NEBILET [Concomitant]
     Active Substance: NEBIVOLOL
     Dosage: 5 MG, QD
     Route: 048
  6. LIPITOR [Concomitant]
     Active Substance: ATORVASTATIN CALCIUM
     Dosage: 10 MG, QD
     Route: 048
  7. SYMBICORT [Concomitant]
     Active Substance: BUDESONIDE\FORMOTEROL FUMARATE DIHYDRATE
     Dosage: 200/6 MCG, AS NECESSARY
     Dates: start: 20150207
  8. LACRI-LUBE [Concomitant]
     Dosage: 3.5 G, QD (AT NIGHT)
     Route: 061
  9. SINGULAIR [Concomitant]
     Active Substance: MONTELUKAST SODIUM
     Dosage: 10 MG, QD
     Route: 048
  10. PROLIA [Suspect]
     Active Substance: DENOSUMAB
     Indication: OSTEOPOROSIS
     Dosage: Q6MO
     Route: 058
     Dates: end: 20150203

REACTIONS (9)
  - Asthenia [Recovering/Resolving]
  - Heart rate increased [Recovered/Resolved]
  - Altered state of consciousness [Unknown]
  - Hypotension [Recovered/Resolved]
  - Rash [Recovering/Resolving]
  - Hypersensitivity [Unknown]
  - Wheezing [Recovering/Resolving]
  - Pruritus [Recovering/Resolving]
  - Malaise [Unknown]

NARRATIVE: CASE EVENT DATE: 2014
